FAERS Safety Report 18845238 (Version 1)
Quarter: 2021Q1

REPORT INFORMATION
  Report Type: Spontaneous
  Country: US (occurrence: US)
  Receive Date: 20210203
  Receipt Date: 20210203
  Transmission Date: 20210419
  Serious: No
  Sender: FDA-Public Use
  Company Number: None

PATIENT
  Age: 31 Year
  Sex: Female
  Weight: 65.77 kg

DRUGS (1)
  1. SIMPONI [Suspect]
     Active Substance: GOLIMUMAB
     Indication: RHEUMATOID ARTHRITIS
     Dosage: INFUSE 131.6MG (2MG/KG) INTRAVENOUSLY AT WEEKS 0 AND 4 AS DIRECTED
     Route: 042
     Dates: start: 202011

REACTIONS (4)
  - Radiation injury [None]
  - Neoplasm malignant [None]
  - Haematochezia [None]
  - Ear infection [None]
